FAERS Safety Report 6098542-9 (Version None)
Quarter: 2009Q1

REPORT INFORMATION
  Report Type: 
  Country: None (occurrence: None)
  Receive Date: 20090302
  Receipt Date: 20090223
  Transmission Date: 20090719
  Serious: Yes (Death, Hospitalization, Other)
  Sender: FDA-Public Use
  Company Number: US-BIOGENIDEC-2008BI003548

PATIENT
  Age: 56 Year
  Sex: Female

DRUGS (17)
  1. TYSABRI [Suspect]
     Indication: MULTIPLE SCLEROSIS
     Route: 042
     Dates: start: 20070919, end: 20080114
  2. METHADONE HCL [Concomitant]
     Route: 048
  3. AMITIZA [Concomitant]
     Route: 048
  4. VICODIN [Concomitant]
     Route: 048
  5. FLAGYL [Concomitant]
     Route: 048
  6. CEPHULAC [Concomitant]
     Indication: CONSTIPATION
     Route: 048
  7. DEPAKOTE [Concomitant]
     Route: 048
  8. RILUTEK [Concomitant]
     Route: 048
  9. DETROL LA [Concomitant]
     Route: 048
  10. GLUCOPHAGE [Concomitant]
  11. HYTRIN [Concomitant]
     Route: 048
  12. NEURONTIN [Concomitant]
     Route: 048
  13. ZYPREXA [Concomitant]
     Route: 048
  14. KLONOPIN [Concomitant]
     Route: 048
  15. LIORESAL [Concomitant]
     Route: 048
  16. CLARITIN [Concomitant]
     Route: 048
  17. HALDOL [Concomitant]
     Route: 048

REACTIONS (6)
  - ANXIETY [None]
  - ASPHYXIA [None]
  - DECUBITUS ULCER [None]
  - OSTEOMYELITIS [None]
  - PAIN [None]
  - URINARY TRACT INFECTION [None]
